FAERS Safety Report 5321017-9 (Version None)
Quarter: 2007Q1

REPORT INFORMATION
  Report Type: 
  Country: None (occurrence: None)
  Receive Date: 20070215
  Receipt Date: 20061020
  Transmission Date: 20070707
  Serious: Yes (Other)
  Sender: FDA-Public Use
  Company Number: 200616093BWH

PATIENT
  Age: 51 Year
  Sex: Male
  Weight: 106.5953 kg

DRUGS (1)
  1. NEXAVAR [Suspect]
     Indication: METASTATIC RENAL CELL CARCINOMA
     Dosage: 400 MG, BID, ORAL
     Route: 048
     Dates: start: 20060904, end: 20060911

REACTIONS (6)
  - BLISTER [None]
  - PAIN OF SKIN [None]
  - RASH [None]
  - SKIN DISCOLOURATION [None]
  - SKIN SWELLING [None]
  - TENDERNESS [None]
